FAERS Safety Report 6885238-6 (Version None)
Quarter: 2010Q3

REPORT INFORMATION
  Report Type: 
  Country: None (occurrence: None)
  Receive Date: 20100729
  Receipt Date: 20080103
  Transmission Date: 20110219
  Serious: No
  Sender: FDA-Public Use
  Company Number: US-PFIZER INC-2008001101

PATIENT
  Age: 58 Year
  Sex: Male

DRUGS (7)
  1. CELEBREX [Suspect]
     Indication: POLYARTHRITIS
  2. CELEBREX [Suspect]
     Indication: DYSURIA
  3. WARFARIN SODIUM [Concomitant]
     Indication: ANTIPHOSPHOLIPID ANTIBODIES
  4. ACETYLSALICYLIC ACID SRT [Concomitant]
  5. CARDIOVASCULAR SYSTEM DRUGS [Concomitant]
  6. LIPITOR [Concomitant]
  7. TRICOR [Concomitant]

REACTIONS (3)
  - ASTHENIA [None]
  - DRUG EFFECT DECREASED [None]
  - PAIN [None]
